FAERS Safety Report 13115247 (Version 2)
Quarter: 2017Q1

REPORT INFORMATION
  Report Type: Spontaneous
  Country: US (occurrence: US)
  Receive Date: 20170113
  Receipt Date: 20170317
  Transmission Date: 20170428
  Serious: Yes (Hospitalization)
  Sender: FDA-Public Use
  Company Number: US-ACTELION-A-NJ2015-111952

PATIENT
  Age: 60 Year
  Sex: Female
  Weight: 89.34 kg

DRUGS (6)
  1. LETAIRIS [Concomitant]
     Active Substance: AMBRISENTAN
  2. COUMADIN [Concomitant]
     Active Substance: WARFARIN SODIUM
  3. VELETRI [Suspect]
     Active Substance: EPOPROSTENOL
     Indication: PULMONARY ARTERIAL HYPERTENSION
     Dosage: 38.2 NG/KG, PER MIN
     Route: 042
  4. VELETRI [Suspect]
     Active Substance: EPOPROSTENOL
     Dosage: 21.8 NG/KG, PER MIN
     Route: 042
  5. VELETRI [Suspect]
     Active Substance: EPOPROSTENOL
     Dosage: 11.5 NG/KG, PER MIN
     Route: 042
     Dates: start: 20141222
  6. ADCIRCA [Concomitant]
     Active Substance: TADALAFIL

REACTIONS (10)
  - Nausea [Unknown]
  - Epistaxis [Unknown]
  - Dyspnoea [Recovering/Resolving]
  - Headache [Unknown]
  - Vomiting [Unknown]
  - Oedema peripheral [Unknown]
  - Fluid retention [Unknown]
  - Ear discomfort [Unknown]
  - Oedema [Unknown]
  - Head discomfort [Unknown]

NARRATIVE: CASE EVENT DATE: 20150121
